FAERS Safety Report 12897672 (Version 2)
Quarter: 2016Q4

REPORT INFORMATION
  Report Type: Spontaneous
  Country: US (occurrence: US)
  Receive Date: 20161031
  Receipt Date: 20161128
  Transmission Date: 20170207
  Serious: Yes (Hospitalization, Other)
  Sender: FDA-Public Use
  Company Number: US-PFIZER INC-2016504880

PATIENT
  Age: 68 Year
  Sex: Male

DRUGS (7)
  1. RAPAMUNE [Suspect]
     Active Substance: SIROLIMUS
     Indication: BIOPSY LUNG
     Dosage: 3 MG, 1X/DAY
     Dates: start: 200708, end: 201412
  2. RAPAMUNE [Suspect]
     Active Substance: SIROLIMUS
     Indication: TRANSPLANT
     Dosage: 1 MG, UNK
     Dates: start: 201412
  3. PROGRAF [Suspect]
     Active Substance: TACROLIMUS\TACROLIMUS ANHYDROUS
     Indication: BIOPSY LUNG
     Dosage: 2 MG, 1X/DAY
     Dates: start: 200701, end: 201412
  4. AMLODIPINE BESILATE [Suspect]
     Active Substance: AMLODIPINE BESYLATE
     Indication: BLOOD PRESSURE ABNORMAL
     Dosage: 10 MG, DAILY
     Dates: start: 2013
  5. PROGRAF [Suspect]
     Active Substance: TACROLIMUS\TACROLIMUS ANHYDROUS
     Dosage: 1 MG, 1X/DAY
     Dates: start: 201412
  6. PROGRAF [Suspect]
     Active Substance: TACROLIMUS\TACROLIMUS ANHYDROUS
     Dosage: 3 MG, 1X/DAY
     Dates: start: 201412
  7. PROGRAF [Suspect]
     Active Substance: TACROLIMUS\TACROLIMUS ANHYDROUS
     Indication: TRANSPLANT
     Dosage: 1 MG, 1X/DAY
     Dates: start: 201412, end: 201412

REACTIONS (8)
  - Bladder cancer [Recovered/Resolved]
  - Lung neoplasm malignant [Recovered/Resolved]
  - Basal cell carcinoma [Recovered/Resolved]
  - Product use issue [Unknown]
  - Lymphoma [Recovered/Resolved]
  - Skin cancer [Recovered/Resolved]
  - Neoplasm malignant [Recovered/Resolved]
  - Lymphoma [Recovered/Resolved]

NARRATIVE: CASE EVENT DATE: 201208
